FAERS Safety Report 21358785 (Version 1)
Quarter: 2022Q3

REPORT INFORMATION
  Report Type: Spontaneous
  Country: FR (occurrence: FR)
  Receive Date: 20220921
  Receipt Date: 20220921
  Transmission Date: 20221026
  Serious: Yes (Hospitalization, Other)
  Sender: FDA-Public Use
  Company Number: None

PATIENT
  Age: 35 Year
  Sex: Female

DRUGS (13)
  1. LANTUS SOLOSTAR [Suspect]
     Active Substance: INSULIN GLARGINE
     Indication: Gestational diabetes
     Dosage: UNK
  2. CLAIRYG [Suspect]
     Active Substance: HUMAN IMMUNOGLOBULIN G
     Indication: Alloimmunisation
     Dosage: 80 MG, QW
     Route: 042
     Dates: start: 20220713, end: 20220713
  3. CLAIRYG [Suspect]
     Active Substance: HUMAN IMMUNOGLOBULIN G
     Dosage: 80 MG, QW
     Route: 042
     Dates: start: 20220721, end: 20220721
  4. CLAIRYG [Suspect]
     Active Substance: HUMAN IMMUNOGLOBULIN G
     Dosage: 20 MG, QW
     Route: 042
     Dates: start: 20220728, end: 20220728
  5. CLAIRYG [Suspect]
     Active Substance: HUMAN IMMUNOGLOBULIN G
     Dosage: 60 MG, QW
     Route: 042
     Dates: start: 20220728, end: 20220728
  6. CLAIRYG [Suspect]
     Active Substance: HUMAN IMMUNOGLOBULIN G
     Dosage: 20 MG, QW
     Route: 042
     Dates: start: 20220804, end: 20220804
  7. CLAIRYG [Suspect]
     Active Substance: HUMAN IMMUNOGLOBULIN G
     Dosage: 40 MG, QW
     Route: 042
     Dates: start: 20220804, end: 20220804
  8. CLAIRYG [Suspect]
     Active Substance: HUMAN IMMUNOGLOBULIN G
     Dosage: 20 MG, QW
     Route: 042
     Dates: start: 20220804, end: 20220804
  9. CLAIRYG [Suspect]
     Active Substance: HUMAN IMMUNOGLOBULIN G
     Dosage: 80 MG, QW
     Route: 042
     Dates: start: 20220811, end: 20220811
  10. CLAIRYG [Suspect]
     Active Substance: HUMAN IMMUNOGLOBULIN G
     Dosage: 80 MG, QW
     Route: 042
     Dates: start: 20220817, end: 20220817
  11. CLAIRYG [Suspect]
     Active Substance: HUMAN IMMUNOGLOBULIN G
     Dosage: 40 MG, QW
     Route: 042
     Dates: start: 20220824, end: 20220824
  12. CLAIRYG [Suspect]
     Active Substance: HUMAN IMMUNOGLOBULIN G
     Dosage: 40 MG, QW
     Route: 042
     Dates: start: 20220824, end: 20220824
  13. CLAIRYG [Suspect]
     Active Substance: HUMAN IMMUNOGLOBULIN G
     Dosage: 40 MG, QW
     Route: 042
     Dates: start: 20220901, end: 20220901

REACTIONS (2)
  - Hepatic cytolysis [Not Recovered/Not Resolved]
  - Maternal exposure during pregnancy [Unknown]

NARRATIVE: CASE EVENT DATE: 20220904
